FAERS Safety Report 8298755-1 (Version None)
Quarter: 2012Q2

REPORT INFORMATION
  Report Type: 
  Country: None (occurrence: None)
  Receive Date: 20120417
  Receipt Date: 20120417
  Transmission Date: 20120825
  Serious: Yes (Disabling)
  Sender: FDA-Public Use
  Company Number: None

PATIENT
  Sex: Male
  Weight: 56.246 kg

DRUGS (1)
  1. AMIODARONE HCL [Suspect]
     Dosage: 200 MG TWICE DAILY MFG EON
     Dates: start: 20091201, end: 20100501

REACTIONS (1)
  - CEREBROVASCULAR ACCIDENT [None]
